FAERS Safety Report 6897650-X (Version None)
Quarter: 2010Q3

REPORT INFORMATION
  Report Type: 
  Country: None (occurrence: None)
  Receive Date: 20100802
  Receipt Date: 20070709
  Transmission Date: 20110219
  Serious: No
  Sender: FDA-Public Use
  Company Number: US-PFIZER INC-2007048607

PATIENT
  Sex: Male

DRUGS (4)
  1. LYRICA [Suspect]
     Indication: PAIN
  2. DILAUDID [Concomitant]
  3. IBUPROFEN [Concomitant]
  4. CORTICOSTEROIDS [Concomitant]

REACTIONS (1)
  - DRUG INEFFECTIVE [None]
